FAERS Safety Report 15207652 (Version 1)
Quarter: 2018Q3

REPORT INFORMATION
  Report Type: Spontaneous
  Country: US (occurrence: US)
  Receive Date: 20180727
  Receipt Date: 20180727
  Transmission Date: 20181010
  Serious: No
  Sender: FDA-Public Use
  Company Number: US-ALLERGAN-1823300US

PATIENT
  Age: 54 Year
  Sex: Male

DRUGS (1)
  1. ANDRODERM [Suspect]
     Active Substance: TESTOSTERONE
     Indication: BLOOD TESTOSTERONE DECREASED
     Dosage: 2 MG, PACK, ONLY USED PATCH FOR 10 HOURS
     Route: 062

REACTIONS (3)
  - Application site vesicles [Not Recovered/Not Resolved]
  - Scar [Unknown]
  - Application site pain [Unknown]
